FAERS Safety Report 5694308-X (Version None)
Quarter: 2008Q2

REPORT INFORMATION
  Report Type: 
  Country: None (occurrence: None)
  Receive Date: 20080402
  Receipt Date: 20080318
  Transmission Date: 20081010
  Serious: Yes (Hospitalization)
  Sender: FDA-Public Use
  Company Number: 2008000621

PATIENT
  Age: 62 Year
  Sex: Male

DRUGS (9)
  1. TARCEVA [Suspect]
     Indication: LUNG NEOPLASM MALIGNANT
     Dosage: ORAL
     Route: 048
     Dates: start: 20080218
  2. ATENOLOL [Concomitant]
  3. AMLODIPINE [Concomitant]
  4. AMIODARONE HCL [Concomitant]
  5. CLOPIDOGREL [Concomitant]
  6. PRAVASTATIN [Concomitant]
  7. CILOSTAZOL [Concomitant]
  8. TACROLIMUS [Concomitant]
  9. SIROLIMUS(SIROLIMUS) [Concomitant]

REACTIONS (5)
  - ANOREXIA [None]
  - ASCITES [None]
  - DIARRHOEA [None]
  - NAUSEA [None]
  - PLEURAL EFFUSION [None]
